FAERS Safety Report 19114804 (Version 1)
Quarter: 2021Q2

REPORT INFORMATION
  Report Type: Spontaneous
  Country: DK (occurrence: DK)
  Receive Date: 20210408
  Receipt Date: 20210408
  Transmission Date: 20210717
  Serious: Yes (Hospitalization)
  Sender: FDA-Public Use
  Company Number: DK-009507513-2104DNK001119

PATIENT
  Age: 80 Year
  Sex: Male
  Weight: 99 kg

DRUGS (1)
  1. KEYTRUDA [Suspect]
     Active Substance: PEMBROLIZUMAB
     Indication: METASTATIC MALIGNANT MELANOMA
     Dosage: DOSAGE: SINGLE DOSES 190 MG TOTAL AND 186 MG TOTAL
     Route: 042
     Dates: start: 20210127, end: 20210217

REACTIONS (3)
  - Eyelid ptosis [Recovering/Resolving]
  - Myositis [Recovering/Resolving]
  - Muscular weakness [Recovering/Resolving]

NARRATIVE: CASE EVENT DATE: 202102
